FAERS Safety Report 7419367-5 (Version None)
Quarter: 2011Q2

REPORT INFORMATION
  Report Type: 
  Country: None (occurrence: None)
  Receive Date: 20110415
  Receipt Date: 20110401
  Transmission Date: 20111010
  Serious: Yes (Hospitalization)
  Sender: FDA-Public Use
  Company Number: US-ASTRAZENECA-2010SE04822

PATIENT
  Age: 15243 Day
  Sex: Male
  Weight: 111.1 kg

DRUGS (9)
  1. PERCOCET [Suspect]
     Route: 065
     Dates: end: 20080101
  2. XANAX [Concomitant]
  3. MUSCLE RELAXANTS [Concomitant]
  4. VITAMINS [Concomitant]
  5. NEXIUM [Suspect]
     Dosage: DAILY
     Route: 048
     Dates: start: 20080101, end: 20100101
  6. PERCOCET [Suspect]
     Dosage: 1-2 PERCOCET DAILY
     Route: 065
     Dates: start: 19990101, end: 20040101
  7. TUMS [Concomitant]
  8. NEXIUM [Suspect]
     Indication: HIATUS HERNIA
     Route: 048
     Dates: start: 20010101, end: 20080101
  9. NEXIUM [Suspect]
     Route: 048
     Dates: start: 20100101

REACTIONS (5)
  - ANKLE FRACTURE [None]
  - OFF LABEL USE [None]
  - DRUG ABUSE [None]
  - VOMITING [None]
  - DRUG DOSE OMISSION [None]
